FAERS Safety Report 4304271-1 (Version None)
Quarter: 2004Q1

REPORT INFORMATION
  Report Type: 
  Country: None (occurrence: None)
  Receive Date: 20040224
  Receipt Date: 20040213
  Transmission Date: 20041129
  Serious: Yes (Hospitalization, Other)
  Sender: FDA-Public Use
  Company Number: 2004UW02625

PATIENT
  Age: 63 Year
  Sex: Male
  Weight: 90.7194 kg

DRUGS (9)
  1. SEROQUEL [Suspect]
     Dosage: 150 MG PO
     Route: 048
     Dates: start: 20031005
  2. SERZONE [Suspect]
  3. TOPROL-XL [Concomitant]
  4. PLAVIX [Concomitant]
  5. ACETYLSALICYLIC ACID [Concomitant]
  6. PROTONIX [Concomitant]
  7. ZOCOR [Concomitant]
  8. LISINOPRIL [Concomitant]
  9. NORVASC [Concomitant]

REACTIONS (6)
  - AGEUSIA [None]
  - ANOSMIA [None]
  - CONFUSIONAL STATE [None]
  - LOSS OF CONSCIOUSNESS [None]
  - MEDICATION ERROR [None]
  - PHOTOSENSITIVITY REACTION [None]
